FAERS Safety Report 16372502 (Version 1)
Quarter: 2019Q2

REPORT INFORMATION
  Report Type: Report from Study
  Country: CA (occurrence: CA)
  Receive Date: 20190530
  Receipt Date: 20190530
  Transmission Date: 20190711
  Serious: Yes (Hospitalization)
  Sender: FDA-Public Use
  Company Number: CA-JNJFOC-20190533371

PATIENT
  Age: 0 Year
  Sex: Male
  Weight: 4.08 kg

DRUGS (2)
  1. REMICADE [Suspect]
     Active Substance: INFLIXIMAB
     Indication: COLITIS
     Route: 063
     Dates: start: 20180606
  2. REMICADE [Suspect]
     Active Substance: INFLIXIMAB
     Indication: COLITIS ULCERATIVE
     Route: 063
     Dates: start: 20180606

REACTIONS (3)
  - Premature baby [Recovered/Resolved]
  - Exposure via breast milk [Unknown]
  - Poor feeding infant [Recovered/Resolved]

NARRATIVE: CASE EVENT DATE: 201905
